FAERS Safety Report 10654414 (Version 1)
Quarter: 2014Q4

REPORT INFORMATION
  Report Type: Spontaneous
  Country: US (occurrence: None)
  Receive Date: 20141205
  Receipt Date: 20141205
  Transmission Date: 20150529
  Serious: Yes (Other)
  Sender: FDA-Public Use
  Company Number: 163-POMAL-14082689

PATIENT
  Age: 61 Year
  Sex: Female
  Weight: 81.65 kg

DRUGS (7)
  1. VELCADE(BORTEZOMIB) [Concomitant]
  2. AMLODIPINE BESYLATE(AMLODIPINE BESILATE) [Concomitant]
  3. OMEPRAZOLE. [Concomitant]
     Active Substance: OMEPRAZOLE
  4. LORAZEPAM(LORAZEPAM) [Concomitant]
     Active Substance: LORAZEPAM
  5. DEXAMETHASONE (DEXAMETHASONE) [Concomitant]
     Active Substance: DEXAMETHASONE
  6. TRIAMTERENE-HCTZ(HYDROCHLOROTHIAZIDE, TRIAMTERENE) [Concomitant]
  7. POMALYST [Suspect]
     Active Substance: POMALIDOMIDE
     Indication: PLASMA CELL MYELOMA
     Dosage: 3 MG , 21 IN 21 D, PO
     Route: 048
     Dates: start: 201405

REACTIONS (13)
  - Back pain [None]
  - Fatigue [None]
  - Weight increased [None]
  - Swelling [None]
  - Pneumonia [None]
  - Dizziness [None]
  - White blood cell count decreased [None]
  - Constipation [None]
  - Neuropathy peripheral [None]
  - Pain [None]
  - Platelet count decreased [None]
  - Asthenia [None]
  - Body height decreased [None]

NARRATIVE: CASE EVENT DATE: 2014
